FAERS Safety Report 4634774-1 (Version None)
Quarter: 2005Q2

REPORT INFORMATION
  Report Type: 
  Country: None (occurrence: None)
  Receive Date: 20050412
  Receipt Date: 20050405
  Transmission Date: 20051028
  Serious: Yes (Hospitalization)
  Sender: FDA-Public Use
  Company Number: 2005AD000022

PATIENT
  Age: 24 Year
  Sex: Female

DRUGS (1)
  1. KEFLEX [Suspect]
     Indication: PHARYNGITIS
     Dosage: 500 MG; BID

REACTIONS (19)
  - ALLERGIC GRANULOMATOUS ANGIITIS [None]
  - BLOOD POTASSIUM DECREASED [None]
  - BLOOD URINE PRESENT [None]
  - CRYOGLOBULINAEMIA [None]
  - DIARRHOEA [None]
  - GASTRITIS [None]
  - GOODPASTURE'S SYNDROME [None]
  - HAEMOGLOBIN INCREASED [None]
  - HAEMOPTYSIS [None]
  - HENOCH-SCHONLEIN PURPURA [None]
  - NAUSEA [None]
  - NEPHROPATHY TOXIC [None]
  - PHARYNGITIS [None]
  - PLATELET COUNT INCREASED [None]
  - PRURITUS [None]
  - RENAL FAILURE ACUTE [None]
  - RENAL TUBULAR NECROSIS [None]
  - VOMITING [None]
  - WEGENER'S GRANULOMATOSIS [None]
